FAERS Safety Report 16189849 (Version 5)
Quarter: 2019Q2

REPORT INFORMATION
  Report Type: Report from Study
  Country: CA (occurrence: CA)
  Receive Date: 20190412
  Receipt Date: 20190614
  Transmission Date: 20190711
  Serious: Yes (Disabling)
  Sender: FDA-Public Use
  Company Number: CA-AMGEN-CANSL2018043875

PATIENT
  Age: 75 Year
  Sex: Male
  Weight: 90.45 kg

DRUGS (6)
  1. NPLATE [Suspect]
     Active Substance: ROMIPLOSTIM
     Indication: IMMUNE THROMBOCYTOPENIC PURPURA
     Dosage: 500 MICROGRAM PER MILLILITER , QWK
     Route: 058
     Dates: start: 20131126
  2. NPLATE [Suspect]
     Active Substance: ROMIPLOSTIM
     Indication: THROMBOCYTOPENIA
     Dosage: 300 MICROGRAM, QWK
     Route: 058
  3. NPLATE [Suspect]
     Active Substance: ROMIPLOSTIM
     Dosage: 300 MICROGRAM, QWK
     Route: 058
  4. NPLATE [Suspect]
     Active Substance: ROMIPLOSTIM
     Dosage: 300 MICROGRAM, QWK
     Route: 058
     Dates: start: 20190501
  5. NPLATE [Suspect]
     Active Substance: ROMIPLOSTIM
     Dosage: 300 MICROGRAM, QWK
     Route: 058
  6. NPLATE [Suspect]
     Active Substance: ROMIPLOSTIM
     Dosage: 300 MICROGRAM, QWK
     Route: 058
     Dates: end: 20190404

REACTIONS (2)
  - Platelet count abnormal [Not Recovered/Not Resolved]
  - Blood pressure abnormal [Unknown]

NARRATIVE: CASE EVENT DATE: 20180320
